FAERS Safety Report 8185659 (Version 2)
Quarter: 2014Q1

REPORT INFORMATION
  Report Type: Spontaneous
  Country: US (occurrence: US)
  Receive Date: 20111018
  Receipt Date: 20140313
  Transmission Date: 20141002
  Serious: No
  Sender: FDA-Public Use
  Company Number: US-ASTRAZENECA-2011SE00175

PATIENT
  Age: 82 Year
  Sex: Male
  Weight: 102.1 kg

DRUGS (22)
  1. SYMBICORT [Suspect]
     Indication: DYSPNOEA
     Dosage: 160/4.5 MCG, 2 PUFFS BID
     Route: 055
     Dates: start: 2010
  2. ATENOLOL [Suspect]
     Indication: BLOOD PRESSURE ABNORMAL
     Route: 048
  3. CRESTOR [Suspect]
     Indication: MYOCARDIAL INFARCTION
     Route: 048
     Dates: start: 201310
  4. DONAPEZIL [Concomitant]
     Indication: DEMENTIA
     Route: 048
  5. LOSARTAN [Concomitant]
     Indication: BLOOD PRESSURE ABNORMAL
     Route: 048
     Dates: start: 2013
  6. DEPAKOTE ER [Concomitant]
     Indication: CONVULSION
     Route: 048
     Dates: start: 201310
  7. GABAPENTIN [Concomitant]
     Indication: PAIN
     Route: 048
  8. NAMENDA [Concomitant]
     Indication: DEMENTIA
     Route: 048
  9. SPIRONOLACTONE [Concomitant]
     Indication: BLOOD PRESSURE ABNORMAL
     Dosage: 1/2 25MG DAILY
     Route: 048
     Dates: start: 2013
  10. ALLOPURINOL [Concomitant]
     Indication: GOUT
     Dosage: 1/2 300MG DAILY
     Route: 048
  11. THERMOTABS [Concomitant]
     Indication: HYPONATRAEMIA
     Dosage: 1 TABLET TID
     Route: 048
     Dates: start: 201310
  12. FLOMAX GENERIC [Concomitant]
     Indication: POLLAKIURIA
     Route: 048
     Dates: start: 201312
  13. METAMUCIL [Concomitant]
     Indication: ABDOMINAL DISCOMFORT
     Dosage: DAILY
     Route: 048
     Dates: start: 2012
  14. MIRALAX [Concomitant]
     Indication: ABDOMINAL DISCOMFORT
     Dosage: DAILY
     Route: 048
     Dates: start: 2012
  15. DUONEB [Concomitant]
     Indication: DYSPNOEA
     Dosage: PRN
     Route: 055
     Dates: start: 2010
  16. ALBUTEROL [Concomitant]
     Indication: DYSPNOEA
     Dosage: 2 PUFFS DAILY
     Route: 055
     Dates: start: 2010
  17. ASPIRIN ENTERIC COATED [Concomitant]
     Indication: MYOCARDIAL INFARCTION
     Route: 048
  18. NEXIUM [Concomitant]
  19. HYZAAR [Concomitant]
  20. NEURONTIN [Concomitant]
  21. XANAX [Concomitant]
  22. FLOMAX [Concomitant]

REACTIONS (4)
  - Body height decreased [Not Recovered/Not Resolved]
  - Hearing impaired [Not Recovered/Not Resolved]
  - Dysgeusia [Unknown]
  - Device misuse [Not Recovered/Not Resolved]
